FAERS Safety Report 4959698-1 (Version None)
Quarter: 2006Q1

REPORT INFORMATION
  Report Type: 
  Country: None (occurrence: None)
  Receive Date: 20060327
  Receipt Date: 20060317
  Transmission Date: 20060701
  Serious: Yes (Death, Life-Threatening, Hospitalization, Other)
  Sender: FDA-Public Use
  Company Number: 2006-03-0164

PATIENT
  Age: 64 Year
  Sex: Male
  Weight: 89 kg

DRUGS (7)
  1. PEG-INTERFERON ALFA-2B                         REDIPEN [Suspect]
     Indication: HEPATITIS C
     Dosage: 150 MCG QWK SUBCUTANEOUS
     Route: 058
     Dates: start: 20060116, end: 20060303
  2. RIBAVIRIN [Suspect]
     Indication: HEPATITIS C
     Dosage: 1200-1000MG* ORAL
     Route: 048
     Dates: start: 20060116, end: 20060101
  3. RIBAVIRIN [Suspect]
     Indication: HEPATITIS C
     Dosage: 1200-1000MG* ORAL
     Route: 048
     Dates: start: 20060101, end: 20060303
  4. EFFEXOR [Concomitant]
  5. NEXIUM [Concomitant]
  6. GLYBURIDE [Concomitant]
  7. DIOVAN [Concomitant]

REACTIONS (5)
  - ABDOMINAL PAIN [None]
  - ACUTE RESPIRATORY DISTRESS SYNDROME [None]
  - LUNG INFILTRATION [None]
  - NAUSEA [None]
  - VOMITING [None]
